FAERS Safety Report 5892809-2 (Version None)
Quarter: 2008Q3

REPORT INFORMATION
  Report Type: 
  Country: None (occurrence: None)
  Receive Date: 20080919
  Receipt Date: 20070831
  Transmission Date: 20090109
  Serious: Yes (Hospitalization)
  Sender: FDA-Public Use
  Company Number: 2007-00804FE

PATIENT
  Age: 63 Year
  Sex: Female

DRUGS (1)
  1. MINIRIN [Suspect]
     Indication: INCONTINENCE

REACTIONS (4)
  - ALCOHOL USE [None]
  - COMA [None]
  - HYPONATRAEMIA [None]
  - WATER INTOXICATION [None]
